FAERS Safety Report 25899167 (Version 1)
Quarter: 2025Q4

REPORT INFORMATION
  Report Type: Spontaneous
  Country: US (occurrence: US)
  Receive Date: 20251009
  Receipt Date: 20251009
  Transmission Date: 20260117
  Serious: Yes (Other)
  Sender: SAMSUNG BIOEPIS
  Company Number: US-SAMSUNG BIOEPIS-SB-2025-33530

PATIENT
  Age: 42 Year
  Sex: Female

DRUGS (4)
  1. ECULIZUMAB [Suspect]
     Active Substance: ECULIZUMAB
     Indication: Thrombotic microangiopathy
  2. TACROLIMUS [Concomitant]
     Active Substance: TACROLIMUS
     Indication: Hyperkalaemia
  3. MYCOPHENOLATE MOFETIL [Concomitant]
     Active Substance: MYCOPHENOLATE MOFETIL
     Indication: Hyperkalaemia
  4. THYMOCYTE IMMUNE GLOBULIN NOS [Concomitant]
     Active Substance: THYMOCYTE IMMUNE GLOBULIN NOS
     Indication: Product used for unknown indication

REACTIONS (7)
  - Anuria [Unknown]
  - Subcapsular renal haematoma [Unknown]
  - Renal ischaemia [Unknown]
  - Hypervolaemia [Unknown]
  - Candida infection [Unknown]
  - Drug ineffective for unapproved indication [Unknown]
  - Off label use [Unknown]
